FAERS Safety Report 12063349 (Version 2)
Quarter: 2016Q1

REPORT INFORMATION
  Report Type: Spontaneous
  Country: US (occurrence: US)
  Receive Date: 20160210
  Receipt Date: 20160329
  Transmission Date: 20160526
  Serious: Yes (Hospitalization, Other)
  Sender: FDA-Public Use
  Company Number: US-BAYER-2016-025948

PATIENT
  Age: 22 Year
  Sex: Female
  Weight: 95 kg

DRUGS (1)
  1. MIRENA [Suspect]
     Active Substance: LEVONORGESTREL
     Indication: CONTRACEPTION
     Dosage: 20 MCG/24HR, CONT
     Route: 015
     Dates: start: 20130830, end: 20150430

REACTIONS (7)
  - Uterine enlargement [None]
  - Genital haemorrhage [None]
  - Depression [Not Recovered/Not Resolved]
  - Uterine perforation [None]
  - Anxiety [Not Recovered/Not Resolved]
  - Device issue [None]
  - Urinary tract infection [None]

NARRATIVE: CASE EVENT DATE: 20130830
